FAERS Safety Report 8146237-X (Version None)
Quarter: 2012Q1

REPORT INFORMATION
  Report Type: 
  Country: None (occurrence: None)
  Receive Date: 20120217
  Receipt Date: 20111214
  Transmission Date: 20120608
  Serious: No
  Sender: FDA-Public Use
  Company Number: US-ABBOTT-11P-163-0883197-00

PATIENT
  Sex: Male
  Weight: 83.536 kg

DRUGS (1)
  1. SIMCOR [Suspect]
     Indication: BLOOD CHOLESTEROL INCREASED
     Dosage: 500/20MG ONCE DAILY
     Dates: start: 20080701

REACTIONS (7)
  - HOT FLUSH [None]
  - PRURITUS [None]
  - ABDOMINAL DISCOMFORT [None]
  - FORMICATION [None]
  - DYSPNOEA [None]
  - ABDOMINAL DISTENSION [None]
  - MUSCLE TIGHTNESS [None]
